FAERS Safety Report 20769749 (Version 1)
Quarter: 2022Q2

REPORT INFORMATION
  Report Type: Spontaneous
  Country: US (occurrence: None)
  Receive Date: 20220429
  Receipt Date: 20220429
  Transmission Date: 20220721
  Serious: No
  Sender: FDA-Public Use
  Company Number: None

PATIENT
  Age: 67 Year
  Sex: Female
  Weight: 60.75 kg

DRUGS (4)
  1. METRONIDAZOLE [Suspect]
     Active Substance: METRONIDAZOLE
     Indication: Product used for unknown indication
     Dosage: OTHER QUANTITY : 1 TABLET(S);?
     Dates: start: 20211123, end: 20211129
  2. SINGULAIR [Concomitant]
     Active Substance: MONTELUKAST SODIUM
  3. LOW DOSE ASPIRIN [Concomitant]
     Active Substance: ASPIRIN
  4. CLARITAN [Concomitant]

REACTIONS (7)
  - Nausea [None]
  - Diarrhoea [None]
  - Abdominal discomfort [None]
  - Abdominal pain upper [None]
  - Decreased appetite [None]
  - Dysgeusia [None]
  - Taste disorder [None]

NARRATIVE: CASE EVENT DATE: 20211126
